FAERS Safety Report 12214279 (Version 1)
Quarter: 2016Q1

REPORT INFORMATION
  Report Type: Spontaneous
  Country: US (occurrence: None)
  Receive Date: 20160325
  Receipt Date: 20160325
  Transmission Date: 20160526
  Serious: Yes (Hospitalization, Other)
  Sender: FDA-Public Use
  Company Number: None

PATIENT
  Age: 88 Year
  Sex: Female
  Weight: 63.3 kg

DRUGS (6)
  1. ELIQUIS [Suspect]
     Active Substance: APIXABAN
     Indication: ATRIAL FIBRILLATION
     Route: 048
     Dates: start: 20151102, end: 20160208
  2. PRADAXA [Suspect]
     Active Substance: DABIGATRAN ETEXILATE MESYLATE
     Indication: ATRIAL FIBRILLATION
     Route: 048
  3. AMLODIPINE [Concomitant]
     Active Substance: AMLODIPINE BESYLATE
  4. LEVOTHYROXINE. [Concomitant]
     Active Substance: LEVOTHYROXINE
  5. SIMVASTATIN. [Concomitant]
     Active Substance: SIMVASTATIN
  6. METOPROLOL TARTRATE. [Concomitant]
     Active Substance: METOPROLOL TARTRATE

REACTIONS (12)
  - Erythema [None]
  - Pleural effusion [None]
  - Pneumonia [None]
  - Acute kidney injury [None]
  - Dyspnoea exertional [None]
  - Henoch-Schonlein purpura [None]
  - Haemodialysis [None]
  - Rectal haemorrhage [None]
  - Purpura [None]
  - IgA nephropathy [None]
  - Haematuria [None]
  - Proteinuria [None]

NARRATIVE: CASE EVENT DATE: 20160229
